FAERS Safety Report 4319843-8 (Version None)
Quarter: 2004Q1

REPORT INFORMATION
  Report Type: 
  Country: None (occurrence: None)
  Receive Date: 20040319
  Receipt Date: 20030624
  Transmission Date: 20041129
  Serious: Yes (Hospitalization)
  Sender: FDA-Public Use
  Company Number: PHHO2003US08122

PATIENT
  Age: 53 Year
  Sex: Male
  Weight: 66 kg

DRUGS (6)
  1. GLEEVEC [Suspect]
     Indication: GASTROINTESTINAL STROMAL TUMOUR
     Dosage: 600 MG, QD
     Route: 048
     Dates: start: 20040304
  2. GLEEVEC [Suspect]
     Dosage: OFF STUDY MEDICATION
     Dates: start: 20031111, end: 20040304
  3. GLEEVEC [Suspect]
     Dosage: 600 MG, QD
     Route: 048
     Dates: start: 20020504, end: 20031110
  4. OXYCODONE [Concomitant]
  5. NEXIUM [Concomitant]
  6. PAMELOR [Concomitant]

REACTIONS (23)
  - ABDOMINAL DISTENSION [None]
  - ABDOMINAL PAIN [None]
  - ANOREXIA [None]
  - ARTHRALGIA [None]
  - BACK PAIN [None]
  - CHILLS [None]
  - DEHYDRATION [None]
  - DIAPHRAGMATIC OPERATION [None]
  - DYSPHAGIA [None]
  - GASTRECTOMY TOTAL [None]
  - GASTRO-INTESTINAL FISTULA [None]
  - GASTROSTOMY [None]
  - JEJUNOSTOMY [None]
  - MALIGNANT NEOPLASM PROGRESSION [None]
  - OESOPHAGECTOMY [None]
  - PAIN [None]
  - PANCREATECTOMY [None]
  - PERICARDIAL EXCISION [None]
  - POST PROCEDURAL COMPLICATION [None]
  - PYREXIA [None]
  - SMALL INTESTINAL RESECTION [None]
  - SPLENECTOMY [None]
  - STENT PLACEMENT [None]
